FAERS Safety Report 5480076-3 (Version None)
Quarter: 2007Q4

REPORT INFORMATION
  Report Type: 
  Country: None (occurrence: None)
  Receive Date: 20071008
  Receipt Date: 20070926
  Transmission Date: 20080405
  Serious: Yes (Hospitalization)
  Sender: FDA-Public Use
  Company Number: NL-PFIZER INC-2007081765

PATIENT
  Sex: Female
  Weight: 100 kg

DRUGS (3)
  1. PROVERA [Suspect]
     Indication: ENDOMETRIOSIS
     Dosage: DAILY DOSE:100MG
     Route: 048
  2. PROVERA [Suspect]
     Dosage: DAILY DOSE:50MG
     Route: 048
  3. NAPROXEN [Concomitant]

REACTIONS (4)
  - ALOPECIA [None]
  - INTRACRANIAL PRESSURE INCREASED [None]
  - OEDEMA [None]
  - WEIGHT INCREASED [None]
